FAERS Safety Report 21573213 (Version 1)
Quarter: 2022Q4

REPORT INFORMATION
  Report Type: Spontaneous
  Country: US (occurrence: US)
  Receive Date: 20221109
  Receipt Date: 20221109
  Transmission Date: 20230112
  Serious: No
  Sender: FDA-Public Use
  Company Number: US-BAYER-2022A153002

PATIENT
  Age: 73 Year
  Sex: Male

DRUGS (2)
  1. CLARITIN [Suspect]
     Active Substance: LORATADINE
     Dosage: 1 DF
     Route: 048
     Dates: start: 20221028, end: 20221028
  2. ZYRTEC [Concomitant]
     Active Substance: CETIRIZINE HYDROCHLORIDE
     Indication: Rhinorrhoea
     Dosage: UNK

REACTIONS (1)
  - Insomnia [Recovered/Resolved]

NARRATIVE: CASE EVENT DATE: 20221028
